FAERS Safety Report 4295156-8 (Version None)
Quarter: 2004Q1

REPORT INFORMATION
  Report Type: 
  Country: None (occurrence: None)
  Receive Date: 20040211
  Receipt Date: 20040130
  Transmission Date: 20041129
  Serious: Yes (Hospitalization)
  Sender: FDA-Public Use
  Company Number: DSK-2003-06076

PATIENT
  Age: 69 Year
  Sex: Female

DRUGS (6)
  1. EVOXAC [Suspect]
     Indication: SJOGREN'S SYNDROME
     Dosage: 90 MG (30 MG, 3 IN 1 D) PER ORAL
     Route: 048
     Dates: start: 20020924, end: 20021211
  2. PREDNISOLONE [Concomitant]
  3. PRAVASTATIN [Concomitant]
  4. ONEALFA (ALFACALCIDOL) [Concomitant]
  5. URSO [Concomitant]
  6. ADALAT CC [Concomitant]

REACTIONS (4)
  - GASTROINTESTINAL EROSION [None]
  - INTESTINAL ISCHAEMIA [None]
  - LARGE INTESTINAL ULCER [None]
  - LOOSE STOOLS [None]
